FAERS Safety Report 8477083-5 (Version None)
Quarter: 2012Q2

REPORT INFORMATION
  Report Type: 
  Country: None (occurrence: None)
  Receive Date: 20120629
  Receipt Date: 20120627
  Transmission Date: 20120825
  Serious: No
  Sender: FDA-Public Use
  Company Number: US-PFIZER INC-2012110168

PATIENT
  Sex: Female

DRUGS (2)
  1. IBUPROFEN (ADVIL) [Suspect]
     Indication: ARTHRITIS
     Dosage: 400 MG, AS NEEDED
     Route: 048
     Dates: end: 20120401
  2. IBUPROFEN (ADVIL) [Suspect]
     Indication: HEADACHE
     Dosage: 600 MG, AS NEEDED
     Route: 048
     Dates: start: 20120401

REACTIONS (3)
  - ARTHRITIS [None]
  - HEADACHE [None]
  - DRUG INEFFECTIVE [None]
